FAERS Safety Report 6827164-4 (Version None)
Quarter: 2010Q3

REPORT INFORMATION
  Report Type: 
  Country: None (occurrence: None)
  Receive Date: 20100709
  Receipt Date: 20100628
  Transmission Date: 20110219
  Serious: Yes (Hospitalization, Other)
  Sender: FDA-Public Use
  Company Number: US-AMGEN-QUU361049

PATIENT
  Sex: Male

DRUGS (2)
  1. ENBREL [Suspect]
     Indication: PSORIATIC ARTHROPATHY
     Route: 058
     Dates: start: 19990801
  2. METHOTREXATE [Concomitant]
     Route: 048

REACTIONS (6)
  - ARTHRITIS [None]
  - CHEST PAIN [None]
  - JOINT DESTRUCTION [None]
  - PANCREATIC CYST [None]
  - PANCREATITIS [None]
  - TUMOUR MARKER TEST [None]
